FAERS Safety Report 14465969 (Version 1)
Quarter: 2018Q1

REPORT INFORMATION
  Report Type: Spontaneous
  Country: JP (occurrence: JP)
  Receive Date: 20180131
  Receipt Date: 20180131
  Transmission Date: 20180509
  Serious: Yes (Other)
  Sender: FDA-Public Use
  Company Number: JP-SUN PHARMACEUTICAL INDUSTRIES LTD-2018RR-161753

PATIENT
  Age: 27 Year
  Sex: Male

DRUGS (1)
  1. CLARITHROMYCIN. [Suspect]
     Active Substance: CLARITHROMYCIN
     Indication: OBLITERATIVE BRONCHIOLITIS
     Dosage: 200 MG, DAILY
     Route: 065

REACTIONS (2)
  - Mycobacterium abscessus infection [Unknown]
  - Drug resistance [Unknown]
